FAERS Safety Report 6868368-4 (Version None)
Quarter: 2010Q3

REPORT INFORMATION
  Report Type: 
  Country: None (occurrence: None)
  Receive Date: 20100722
  Receipt Date: 20100623
  Transmission Date: 20110219
  Serious: Yes (Other)
  Sender: FDA-Public Use
  Company Number: BR-PFIZER INC-2010082431

PATIENT
  Age: 53 Year
  Sex: Female

DRUGS (4)
  1. CHAMPIX [Suspect]
     Indication: NICOTINE DEPENDENCE
     Dosage: 1 TABLET, 1X/DAY
     Route: 048
     Dates: start: 20100511, end: 20100522
  2. CHAMPIX [Suspect]
     Indication: SMOKING CESSATION THERAPY
  3. RIVOTRIL [Suspect]
     Indication: NERVOUSNESS
     Dosage: UNK
  4. RIVOTRIL [Suspect]
     Indication: ANXIETY

REACTIONS (4)
  - DEPRESSION [None]
  - FORMICATION [None]
  - NERVOUSNESS [None]
  - WITHDRAWAL SYNDROME [None]
